FAERS Safety Report 22003190 (Version 2)
Quarter: 2023Q1

REPORT INFORMATION
  Report Type: Report from Study
  Country: US (occurrence: US)
  Receive Date: 20230217
  Receipt Date: 20230222
  Transmission Date: 20230417
  Serious: Yes (Other)
  Sender: FDA-Public Use
  Company Number: US-PTC THERAPEUTICS INC.-US-2022PTC001718

PATIENT
  Age: 8 Year
  Sex: Male
  Weight: 22.676 kg

DRUGS (3)
  1. EMFLAZA [Suspect]
     Active Substance: DEFLAZACORT
     Indication: Duchenne muscular dystrophy
     Dosage: 18 MG (THREE 6 MG TABLETS), QD
     Route: 048
     Dates: start: 202103
  2. ENALAPRIL MALEATE [Concomitant]
     Active Substance: ENALAPRIL MALEATE
     Indication: Product used for unknown indication
     Dosage: 2.5 MG, QD
  3. DOCUSATE [Concomitant]
     Active Substance: DOCUSATE
     Indication: Product used for unknown indication
     Dosage: 100 MG CAP

REACTIONS (2)
  - Mouth ulceration [Not Recovered/Not Resolved]
  - Oropharyngeal plaque [Not Recovered/Not Resolved]

NARRATIVE: CASE EVENT DATE: 20210207
